FAERS Safety Report 7023376-8 (Version None)
Quarter: 2010Q3

REPORT INFORMATION
  Report Type: 
  Country: None (occurrence: None)
  Receive Date: 20100930
  Receipt Date: 20100920
  Transmission Date: 20110219
  Serious: Yes (Hospitalization)
  Sender: FDA-Public Use
  Company Number: US-ELI_LILLY_AND_COMPANY-US201006001768

PATIENT
  Sex: Female

DRUGS (10)
  1. FORTEO [Suspect]
     Indication: OSTEOPOROSIS
     Dosage: 20 UG, DAILY (1/D)
     Dates: start: 20090401, end: 20100524
  2. OSCAL /00108001/ [Concomitant]
  3. CENTRUM SILVER [Concomitant]
  4. ASPIRIN [Concomitant]
  5. IRON [Concomitant]
  6. FOLIC ACID [Concomitant]
  7. ATENOLOL [Concomitant]
  8. LOVASTATIN [Concomitant]
  9. METHOTREXATE [Concomitant]
  10. STOOL SOFTENER [Concomitant]

REACTIONS (2)
  - BACK PAIN [None]
  - KNEE ARTHROPLASTY [None]
